FAERS Safety Report 7023614-1 (Version None)
Quarter: 2010Q3

REPORT INFORMATION
  Report Type: 
  Country: None (occurrence: None)
  Receive Date: 20100930
  Receipt Date: 20100930
  Transmission Date: 20110219
  Serious: Yes (Other)
  Sender: FDA-Public Use
  Company Number: None

PATIENT
  Age: 47 Year
  Sex: Female
  Weight: 65.7716 kg

DRUGS (1)
  1. ALDARA [Suspect]
     Indication: BASAL CELL CARCINOMA
     Dosage: EVERY NIGHT WASH OFF IN AM EVERY NIGHT M-F TRANSDERMAL
     Route: 062
     Dates: start: 20080820, end: 20080917

REACTIONS (7)
  - ANXIETY [None]
  - BURNING SENSATION [None]
  - DEPRESSION [None]
  - INSOMNIA [None]
  - NEUROPATHY PERIPHERAL [None]
  - OFF LABEL USE [None]
  - TINNITUS [None]
